FAERS Safety Report 23630418 (Version 1)
Quarter: 2024Q1

REPORT INFORMATION
  Report Type: Spontaneous
  Country: RO (occurrence: RO)
  Receive Date: 20240314
  Receipt Date: 20240314
  Transmission Date: 20240410
  Serious: Yes (Other)
  Sender: FDA-Public Use
  Company Number: RO-BRISTOL-MYERS SQUIBB COMPANY-2024-037797

PATIENT
  Age: 71 Year
  Sex: Male
  Weight: 75 kg

DRUGS (11)
  1. OPDIVO [Suspect]
     Active Substance: NIVOLUMAB
     Indication: Non-small cell lung cancer
     Dates: start: 20231117
  2. OPDIVO [Suspect]
     Active Substance: NIVOLUMAB
  3. OPDIVO [Suspect]
     Active Substance: NIVOLUMAB
  4. OPDIVO [Suspect]
     Active Substance: NIVOLUMAB
     Dates: end: 20240207
  5. YERVOY [Suspect]
     Active Substance: IPILIMUMAB
     Indication: Non-small cell lung cancer
     Dates: start: 20231117
  6. YERVOY [Suspect]
     Active Substance: IPILIMUMAB
     Dates: end: 20240207
  7. PACLITAXEL [Concomitant]
     Active Substance: PACLITAXEL
     Indication: Product used for unknown indication
  8. PACLITAXEL [Concomitant]
     Active Substance: PACLITAXEL
  9. CARBOPLATIN [Concomitant]
     Active Substance: CARBOPLATIN
     Indication: Product used for unknown indication
     Dosage: (AUC=5)
  10. CARBOPLATIN [Concomitant]
     Active Substance: CARBOPLATIN
     Dosage: (AUC=5)
  11. PEGFILGRASTIM [Concomitant]
     Active Substance: PEGFILGRASTIM
     Indication: Febrile neutropenia
     Route: 058

REACTIONS (10)
  - Leukocytosis [Unknown]
  - Neutrophilia [Unknown]
  - Iron deficiency [Unknown]
  - Anaemia [Unknown]
  - Asthenia [Unknown]
  - Decreased appetite [Unknown]
  - Pain [Unknown]
  - Skin reaction [Unknown]
  - General physical health deterioration [Unknown]
  - Chronic inflammatory response syndrome [Unknown]

NARRATIVE: CASE EVENT DATE: 20240216
